FAERS Safety Report 14896331 (Version 1)
Quarter: 2018Q2

REPORT INFORMATION
  Report Type: Spontaneous
  Country: US (occurrence: US)
  Receive Date: 20180515
  Receipt Date: 20180515
  Transmission Date: 20180711
  Serious: No
  Sender: FDA-Public Use
  Company Number: US-LEO PHARMA-308889

PATIENT
  Sex: Female

DRUGS (1)
  1. PICATO [Suspect]
     Active Substance: INGENOL MEBUTATE
     Indication: PRODUCT USED FOR UNKNOWN INDICATION
     Route: 061
     Dates: start: 20180506, end: 20180507

REACTIONS (5)
  - Application site vesicles [Unknown]
  - Application site discharge [Recovered/Resolved]
  - Medication error [Unknown]
  - Incorrect dose administered [Unknown]
  - Application site swelling [Not Recovered/Not Resolved]
